FAERS Safety Report 8416970-0 (Version None)
Quarter: 2012Q2

REPORT INFORMATION
  Report Type: 
  Country: None (occurrence: None)
  Receive Date: 20120606
  Receipt Date: 20120530
  Transmission Date: 20120825
  Serious: Yes (Other)
  Sender: FDA-Public Use
  Company Number: US-BAXTER-2012BAX007163

PATIENT
  Sex: Female

DRUGS (1)
  1. GAMMAGARD LIQUID [Suspect]
     Route: 058

REACTIONS (3)
  - RENAL PAIN [None]
  - URINE COLOUR ABNORMAL [None]
  - URINE OUTPUT DECREASED [None]
